FAERS Safety Report 18106085 (Version 1)
Quarter: 2020Q3

REPORT INFORMATION
  Report Type: Spontaneous
  Country: JP (occurrence: JP)
  Receive Date: 20200803
  Receipt Date: 20200803
  Transmission Date: 20201103
  Serious: Yes (Hospitalization)
  Sender: FDA-Public Use
  Company Number: JP-AMNEAL PHARMACEUTICALS-2020-AMRX-02204

PATIENT
  Age: 72 Year
  Sex: Male

DRUGS (1)
  1. OMEPRAZOLE DELAYED RELEASE [Suspect]
     Active Substance: OMEPRAZOLE
     Indication: PRODUCT USED FOR UNKNOWN INDICATION
     Dosage: UNK
     Route: 065

REACTIONS (9)
  - Renal tubular acidosis [Recovered/Resolved]
  - Hypokalaemia [Recovered/Resolved]
  - Hypomagnesaemia [Recovered/Resolved]
  - Metabolic acidosis [Recovered/Resolved]
  - Rhabdomyolysis [Recovered/Resolved]
  - Hyperlactacidaemia [Recovered/Resolved]
  - Syncope [Recovered/Resolved]
  - Hyperammonaemia [Recovered/Resolved]
  - Hypocalcaemia [Recovered/Resolved]
